FAERS Safety Report 14686339 (Version 1)
Quarter: 2018Q1

REPORT INFORMATION
  Report Type: Spontaneous
  Country: US (occurrence: US)
  Receive Date: 20180326
  Receipt Date: 20180326
  Transmission Date: 20180509
  Serious: Yes (Hospitalization)
  Sender: FDA-Public Use
  Company Number: None

PATIENT
  Sex: Male

DRUGS (33)
  1. MYCOPHENOLATE 250MG [Suspect]
     Active Substance: MYCOPHENOLIC ACID
     Indication: TRANSPLANT
     Route: 048
     Dates: start: 20160805
  2. MYCOPHENOLATE  500 MG [Suspect]
     Active Substance: MYCOPHENOLATE MOFETIL
     Indication: TRANSPLANT
     Route: 048
     Dates: start: 20160805
  3. ALLOPURINOL. [Concomitant]
     Active Substance: ALLOPURINOL
  4. CLOPIDOGREL [Concomitant]
     Active Substance: CLOPIDOGREL BISULFATE
  5. TRAVEL LANCE MIS [Concomitant]
  6. METOPROLOL SUC [Concomitant]
  7. ROSUVASTATIN. [Concomitant]
     Active Substance: ROSUVASTATIN
  8. ONETOUCH TES VERIO [Concomitant]
  9. CYCLOSPORINE. [Concomitant]
     Active Substance: CYCLOSPORINE
  10. SODIUM BICAR [Concomitant]
  11. CHLORHEX GLU SOL [Concomitant]
  12. OXYCODONE AND ACETAMINOPHEN [Concomitant]
     Active Substance: ACETAMINOPHEN\OXYCODONE HYDROCHLORIDE
  13. LIDOCAINE. [Concomitant]
     Active Substance: LIDOCAINE
  14. ADVAIR DISKU AER [Concomitant]
  15. LANTUS [Concomitant]
     Active Substance: INSULIN GLARGINE
  16. DICLOFENAC GEL [Concomitant]
     Active Substance: DICLOFENAC
  17. PRODIGY MIS [Concomitant]
  18. FLUCONAZOLE. [Concomitant]
     Active Substance: FLUCONAZOLE
  19. ALCOHOL PREP PAD [Concomitant]
     Active Substance: ISOPROPYL ALCOHOL
  20. PREDNISONE. [Concomitant]
     Active Substance: PREDNISONE
  21. AMOXICILLIN. [Concomitant]
     Active Substance: AMOXICILLIN
  22. INSULIN SYRINGE MIS [Concomitant]
  23. ZOLPIDEM [Concomitant]
     Active Substance: ZOLPIDEM\ZOLPIDEM TARTRATE
  24. DICYCLOMINE [Concomitant]
     Active Substance: DICYCLOMINE HYDROCHLORIDE
  25. TRAZODONE [Concomitant]
     Active Substance: TRAZODONE HYDROCHLORIDE
  26. HUMALOG [Concomitant]
     Active Substance: INSULIN LISPRO
  27. FRESSTYLE TESS LITE [Concomitant]
  28. VALACYCLOVIR [Concomitant]
     Active Substance: VALACYCLOVIR HYDROCHLORIDE
  29. NYSTATIN. [Concomitant]
     Active Substance: NYSTATIN
  30. AMOX/CLAV [Concomitant]
     Active Substance: AMOXICILLIN\CLAVULANATE POTASSIUM
  31. OMEPRAZOLE. [Concomitant]
     Active Substance: OMEPRAZOLE
  32. WARFARIN [Concomitant]
     Active Substance: WARFARIN
  33. OSELTAMIVIR [Concomitant]
     Active Substance: OSELTAMIVIR

REACTIONS (2)
  - Unevaluable event [None]
  - Hospitalisation [None]
